FAERS Safety Report 19613055 (Version 1)
Quarter: 2021Q3

REPORT INFORMATION
  Report Type: Spontaneous
  Country: US (occurrence: US)
  Receive Date: 20210724
  Receipt Date: 20210724
  Transmission Date: 20211014
  Serious: Yes (Death, Hospitalization)
  Sender: FDA-Public Use
  Company Number: None

PATIENT
  Age: 20 Month
  Sex: Male
  Weight: 15.5 kg

DRUGS (5)
  1. DOXORUBICIN HYDROCHLORIDE. [Suspect]
     Active Substance: DOXORUBICIN HYDROCHLORIDE
     Dates: end: 20210528
  2. 5?FLUOROURACIL (5?FU) [Suspect]
     Active Substance: FLUOROURACIL
     Dates: end: 20210527
  3. ZINECARD [Suspect]
     Active Substance: DEXRAZOXANE HYDROCHLORIDE
     Dates: end: 20210528
  4. CISPLATIN. [Suspect]
     Active Substance: CISPLATIN
     Dates: end: 20210527
  5. VINCRISTINE SULFATE. [Suspect]
     Active Substance: VINCRISTINE SULFATE
     Dates: end: 20210610

REACTIONS (8)
  - Respiratory distress [None]
  - Coagulopathy [None]
  - Splenic lesion [None]
  - Acute respiratory failure [None]
  - Pyrexia [None]
  - Metabolic acidosis [None]
  - Pulmonary fibrosis [None]
  - Respiratory acidosis [None]

NARRATIVE: CASE EVENT DATE: 20210722
